FAERS Safety Report 12489665 (Version 1)
Quarter: 2016Q2

REPORT INFORMATION
  Report Type: Spontaneous
  Country: AU (occurrence: AU)
  Receive Date: 20160622
  Receipt Date: 20160622
  Transmission Date: 20160815
  Serious: Yes (Hospitalization)
  Sender: FDA-Public Use
  Company Number: AU-MYLANLABS-2016M1025942

PATIENT

DRUGS (1)
  1. MIDODRINE [Suspect]
     Active Substance: MIDODRINE
     Indication: PRODUCT USED FOR UNKNOWN INDICATION
     Dosage: INGESTED 70 X 5MG TABLETS
     Route: 048

REACTIONS (5)
  - Bradycardia [Recovering/Resolving]
  - Intentional overdose [Recovering/Resolving]
  - Vomiting [Recovered/Resolved]
  - Hypertension [Recovering/Resolving]
  - Depressed level of consciousness [Recovering/Resolving]
